FAERS Safety Report 7038087-2 (Version None)
Quarter: 2010Q4

REPORT INFORMATION
  Report Type: 
  Country: None (occurrence: None)
  Receive Date: 20101011
  Receipt Date: 20100929
  Transmission Date: 20110411
  Serious: Yes (Other)
  Sender: FDA-Public Use
  Company Number: CO-PFIZER INC-2010124251

PATIENT
  Age: 88 Year
  Sex: Male

DRUGS (2)
  1. DETRUSITOL [Suspect]
     Indication: RENAL DISORDER
     Dosage: 4 MG, 1X/DAY
     Route: 048
  2. DETRUSITOL [Suspect]
     Dosage: UNK
     Route: 048

REACTIONS (2)
  - INSOMNIA [None]
  - NERVOUSNESS [None]
